FAERS Safety Report 14455351 (Version 1)
Quarter: 2018Q1

REPORT INFORMATION
  Report Type: Spontaneous
  Country: US (occurrence: US)
  Receive Date: 20180129
  Receipt Date: 20180129
  Transmission Date: 20180509
  Serious: Yes (Other)
  Sender: FDA-Public Use
  Company Number: US-BEH-2018087121

PATIENT
  Age: 64 Year
  Sex: Male
  Weight: 78.5 kg

DRUGS (22)
  1. IPRATROPIUM BROMIDE AND ALBUTEROL SULFATE [Concomitant]
     Active Substance: ALBUTEROL SULFATE\IPRATROPIUM BROMIDE
  2. GABAPENTIN. [Concomitant]
     Active Substance: GABAPENTIN
  3. LOSARTAN. [Concomitant]
     Active Substance: LOSARTAN
  4. THEOPHYLLINE [Concomitant]
     Active Substance: THEOPHYLLINE ANHYDROUS
  5. VENTOLIN [Concomitant]
     Active Substance: ALBUTEROL SULFATE
  6. ZEMAIRA [Suspect]
     Active Substance: .ALPHA.1-PROTEINASE INHIBITOR HUMAN
     Indication: ALPHA-1 ANTI-TRYPSIN DEFICIENCY
     Dosage: 60 MG/KG, UNK
     Route: 042
     Dates: start: 20141003
  7. ALEVE [Concomitant]
     Active Substance: NAPROXEN SODIUM
  8. ZEMAIRA [Suspect]
     Active Substance: .ALPHA.1-PROTEINASE INHIBITOR HUMAN
     Dosage: UNK
     Route: 042
  9. LORAZEPAM. [Concomitant]
     Active Substance: LORAZEPAM
  10. LEVOTHYROXINE. [Concomitant]
     Active Substance: LEVOTHYROXINE
  11. VITAMIN B12 [Concomitant]
     Active Substance: CYANOCOBALAMIN
  12. ATORVASTATIN [Concomitant]
     Active Substance: ATORVASTATIN
  13. ASPIRIN. [Concomitant]
     Active Substance: ASPIRIN
  14. ADVAIR HFA [Concomitant]
     Active Substance: FLUTICASONE PROPIONATE\SALMETEROL XINAFOATE
  15. SINGULAIR [Concomitant]
     Active Substance: MONTELUKAST SODIUM
  16. OXYGEN. [Concomitant]
     Active Substance: OXYGEN
  17. MOMETASONE [Concomitant]
     Active Substance: MOMETASONE
  18. SPRYCEL [Concomitant]
     Active Substance: DASATINIB
  19. PENTASA [Concomitant]
     Active Substance: MESALAMINE
  20. DALIRESP [Concomitant]
     Active Substance: ROFLUMILAST
  21. METOPROLOL. [Concomitant]
     Active Substance: METOPROLOL
  22. OMEPRAZOLE. [Concomitant]
     Active Substance: OMEPRAZOLE

REACTIONS (4)
  - Back pain [Unknown]
  - Nephrolithiasis [Unknown]
  - Dyspnoea at rest [Unknown]
  - Flank pain [Unknown]

NARRATIVE: CASE EVENT DATE: 20180120
